FAERS Safety Report 12162041 (Version 1)
Quarter: 2016Q1

REPORT INFORMATION
  Report Type: Spontaneous
  Country: US (occurrence: None)
  Receive Date: 20160307
  Receipt Date: 20160307
  Transmission Date: 20160526
  Serious: Yes (Disabling)
  Sender: FDA-Public Use
  Company Number: None

PATIENT
  Age: 44 Year
  Sex: Male
  Weight: 88.45 kg

DRUGS (7)
  1. HAWTHORN EXTRACT [Concomitant]
  2. IRON [Concomitant]
     Active Substance: IRON
  3. ZINC [Concomitant]
     Active Substance: ZINC\ZINC CHLORIDE
  4. MULTI MINERALS [Concomitant]
     Active Substance: MINERALS\VITAMINS
  5. TRESIBA [Suspect]
     Active Substance: INSULIN DEGLUDEC
     Indication: TYPE 1 DIABETES MELLITUS
     Dosage: 21 UNITS ONCE DAILY INJECTED UNDER SKIN
     Route: 058
  6. HUMALOG [Concomitant]
     Active Substance: INSULIN LISPRO
  7. VITAMIN D [Concomitant]
     Active Substance: CHOLECALCIFEROL

REACTIONS (1)
  - Pneumonia [None]

NARRATIVE: CASE EVENT DATE: 20160226
